FAERS Safety Report 5227463-6 (Version None)
Quarter: 2007Q1

REPORT INFORMATION
  Report Type: 
  Country: None (occurrence: None)
  Receive Date: 20070202
  Receipt Date: 20070126
  Transmission Date: 20070707
  Serious: Yes (Life-Threatening)
  Sender: FDA-Public Use
  Company Number: GB-ELI_LILLY_AND_COMPANY-GB200701005191

PATIENT
  Age: 46 Year
  Sex: Female
  Weight: 50 kg

DRUGS (1)
  1. CEFUROXIME [Suspect]
     Indication: ANTIBIOTIC PROPHYLAXIS
     Dosage: 1.5 G, DAILY (1/D)
     Route: 042
     Dates: start: 20061105

REACTIONS (2)
  - BRONCHOSPASM [None]
  - SWELLING FACE [None]
